FAERS Safety Report 20221566 (Version 3)
Quarter: 2022Q1

REPORT INFORMATION
  Report Type: Spontaneous
  Country: DE (occurrence: DE)
  Receive Date: 20211223
  Receipt Date: 20220112
  Transmission Date: 20220423
  Serious: Yes (Hospitalization, Other)
  Sender: FDA-Public Use
  Company Number: DE-TD-PHARMA-1801658-2

PATIENT
  Age: 16 Year
  Sex: Female
  Weight: 112 kg

DRUGS (1)
  1. IBUPROFEN [Suspect]
     Active Substance: IBUPROFEN
     Indication: Dysmenorrhoea
     Dosage: UNK(12-14 TABLETS (=46 MG/KG/D))
     Route: 048

REACTIONS (7)
  - Acute kidney injury [Recovered/Resolved]
  - Overdose [Recovered/Resolved]
  - Pyelonephritis [Recovered/Resolved]
  - Flank pain [Recovered/Resolved]
  - Vomiting [Recovered/Resolved]
  - Nephropathy toxic [Recovered/Resolved]
  - Costovertebral angle tenderness [Recovered/Resolved]
